FAERS Safety Report 6419366-6 (Version None)
Quarter: 2009Q4

REPORT INFORMATION
  Report Type: 
  Country: None (occurrence: None)
  Receive Date: 20091013
  Receipt Date: 20090716
  Transmission Date: 20100525
  Serious: Yes (Death, Other)
  Sender: FDA-Public Use
  Company Number: 1000007560

PATIENT
  Age: 58 Year
  Sex: Female

DRUGS (3)
  1. LEXAPRO [Suspect]
     Dates: end: 20090528
  2. ZYPREXA [Suspect]
     Indication: BIPOLAR DISORDER
     Dosage: 30 MG, ORAL
     Route: 048
     Dates: end: 20090528
  3. SYMBYAX [Suspect]
     Dosage: 12/25MG (1 IN 1 D)
     Dates: end: 20090528

REACTIONS (1)
  - DEATH [None]
